FAERS Safety Report 9147875 (Version 2)
Quarter: 2013Q1

REPORT INFORMATION
  Report Type: Report from Study
  Country: US (occurrence: US)
  Receive Date: 20130307
  Receipt Date: 20130308
  Transmission Date: 20140127
  Serious: Yes (Other)
  Sender: FDA-Public Use
  Company Number: US-ABBOTT-13P-163-1056840-00

PATIENT
  Age: 56 Year
  Sex: Female

DRUGS (8)
  1. HUMIRA [Suspect]
     Indication: SCLERODERMA
  2. PROCARDIA [Concomitant]
     Indication: CARDIAC DISORDER
     Dosage: 30 MG DAILY
  3. LIPITOR [Concomitant]
     Indication: BLOOD CHOLESTEROL INCREASED
     Dosage: 20 MG DAILY
  4. MVI [Concomitant]
     Indication: PRODUCT USED FOR UNKNOWN INDICATION
     Dosage: DAILY
  5. CALCIUM [Concomitant]
     Indication: PRODUCT USED FOR UNKNOWN INDICATION
     Dosage: DAILY
  6. ACIPHEX [Concomitant]
     Indication: GASTRIC DISORDER
     Dosage: DAILY
  7. PLAVIX [Concomitant]
     Indication: CARDIAC DISORDER
     Dosage: DAILY
  8. ASA [Concomitant]
     Indication: ANTICOAGULANT THERAPY
     Dosage: 81 MG DAILY

REACTIONS (5)
  - Cerebrovascular accident [Unknown]
  - Myocardial infarction [Unknown]
  - Skin ulcer [Unknown]
  - Drug effect decreased [Unknown]
  - Hemiparesis [Unknown]
